FAERS Safety Report 5716319-8 (Version None)
Quarter: 2008Q2

REPORT INFORMATION
  Report Type: 
  Country: None (occurrence: None)
  Receive Date: 20080424
  Receipt Date: 20080415
  Transmission Date: 20081010
  Serious: Yes (Hospitalization)
  Sender: FDA-Public Use
  Company Number: US-MERCK-0705USA05557

PATIENT
  Age: 73 Year
  Sex: Female

DRUGS (1)
  1. FOSAMAX [Suspect]
     Indication: OSTEOPOROSIS
     Route: 048
     Dates: start: 19950101, end: 20000512

REACTIONS (13)
  - ABSCESS [None]
  - ANKLE FRACTURE [None]
  - BREAST CANCER [None]
  - CAROTID ARTERY OCCLUSION [None]
  - DENTAL CARIES [None]
  - FACIAL BONES FRACTURE [None]
  - HAND FRACTURE [None]
  - IMPAIRED HEALING [None]
  - INJURY [None]
  - ORAL HERPES [None]
  - OSTEONECROSIS [None]
  - TEMPOROMANDIBULAR JOINT SYNDROME [None]
  - VENOUS OCCLUSION [None]
